FAERS Safety Report 7055936-2 (Version None)
Quarter: 2010Q4

REPORT INFORMATION
  Report Type: 
  Country: None (occurrence: None)
  Receive Date: 20101021
  Receipt Date: 20101012
  Transmission Date: 20110411
  Serious: Yes (Death, Hospitalization)
  Sender: FDA-Public Use
  Company Number: A0764951A

PATIENT
  Age: 63 Year
  Sex: Male
  Weight: 110.9 kg

DRUGS (5)
  1. AVANDIA [Suspect]
     Dosage: 8MG PER DAY
     Route: 048
     Dates: end: 20070302
  2. INSULIN [Concomitant]
  3. STARLIX [Concomitant]
  4. ASPIRIN [Concomitant]
  5. MULTI-VITAMIN [Concomitant]

REACTIONS (5)
  - CARDIAC FAILURE CONGESTIVE [None]
  - CHEST PAIN [None]
  - DEATH [None]
  - HEART INJURY [None]
  - MYOCARDIAL INFARCTION [None]
